FAERS Safety Report 9132517 (Version 3)
Quarter: 2014Q3

REPORT INFORMATION
  Report Type: Spontaneous
  Country: US (occurrence: US)
  Receive Date: 20130208
  Receipt Date: 20140728
  Transmission Date: 20150326
  Serious: Yes (Hospitalization, Disabling, Other)
  Sender: FDA-Public Use
  Company Number: US-009507513-2011SP000347

PATIENT
  Sex: Female
  Weight: 85.73 kg

DRUGS (2)
  1. HYDROCHLOROTHIAZIDE AND LISINOPRIL [Concomitant]
     Active Substance: HYDROCHLOROTHIAZIDE\LISINOPRIL
     Indication: HYPERTENSION
     Dosage: 1 DF, QD
     Dates: start: 200606
  2. NUVARING [Suspect]
     Active Substance: ETHINYL ESTRADIOL\ETONOGESTREL
     Indication: CONTRACEPTION
     Dosage: UNK
     Route: 067
     Dates: start: 2005, end: 200812

REACTIONS (11)
  - Tumour excision [Unknown]
  - Pulmonary embolism [Unknown]
  - Anaemia [Unknown]
  - Uterine leiomyoma [Unknown]
  - Vena cava filter insertion [Unknown]
  - Deep vein thrombosis [Unknown]
  - Tumour rupture [Unknown]
  - Pelvic inflammatory disease [Unknown]
  - Depression [Unknown]
  - Hepatic infection [Unknown]
  - Impaired work ability [Unknown]

NARRATIVE: CASE EVENT DATE: 200812
